FAERS Safety Report 9287050 (Version 1)
Quarter: 2013Q2

REPORT INFORMATION
  Report Type: Spontaneous
  Country: GB (occurrence: GB)
  Receive Date: 20130513
  Receipt Date: 20130513
  Transmission Date: 20140414
  Serious: Yes (Hospitalization, Other)
  Sender: FDA-Public Use
  Company Number: GB-SHIRE-ALL1-2013-02888

PATIENT
  Sex: Male

DRUGS (1)
  1. XAGRID [Suspect]
     Indication: POLYCYTHAEMIA
     Dosage: 1 MG, 2X/DAY:BID
     Route: 048

REACTIONS (2)
  - Hospitalisation [Not Recovered/Not Resolved]
  - Creatinine renal clearance abnormal [Not Recovered/Not Resolved]
